FAERS Safety Report 16879387 (Version 3)
Quarter: 2020Q1

REPORT INFORMATION
  Report Type: Spontaneous
  Country: CL (occurrence: CL)
  Receive Date: 20191003
  Receipt Date: 20200122
  Transmission Date: 20200409
  Serious: Yes (Death, Other)
  Sender: FDA-Public Use
  Company Number: CL-ROCHE-2400981

PATIENT
  Age: 45 Year

DRUGS (11)
  1. PREDNISONE. [Concomitant]
     Active Substance: PREDNISONE
  2. VINCRISTINE [Concomitant]
     Active Substance: VINCRISTINE
  3. RITUXIMAB. [Suspect]
     Active Substance: RITUXIMAB
     Indication: DIFFUSE LARGE B-CELL LYMPHOMA
     Route: 042
  4. CYCLOPHOSPHAMIDE. [Concomitant]
     Active Substance: CYCLOPHOSPHAMIDE
  5. DEXAMETHASONE. [Concomitant]
     Active Substance: DEXAMETHASONE
  6. CYTARABINE. [Concomitant]
     Active Substance: CYTARABINE
  7. IFOSFAMIDE. [Concomitant]
     Active Substance: IFOSFAMIDE
  8. CISPLATIN. [Concomitant]
     Active Substance: CISPLATIN
  9. DOXORUBICIN [Concomitant]
     Active Substance: DOXORUBICIN
  10. CARBOPLATIN. [Concomitant]
     Active Substance: CARBOPLATIN
  11. ETOPOSIDE PHOSPHATE [Concomitant]
     Active Substance: ETOPOSIDE PHOSPHATE

REACTIONS (4)
  - Renal impairment [Unknown]
  - Non-Hodgkin^s lymphoma recurrent [Unknown]
  - Ileal stenosis [Recovered/Resolved]
  - Oropharyngeal discomfort [Unknown]
